FAERS Safety Report 14662847 (Version 2)
Quarter: 2018Q3

REPORT INFORMATION
  Report Type: Report from Study
  Country: US (occurrence: US)
  Receive Date: 20180321
  Receipt Date: 20180702
  Transmission Date: 20181010
  Serious: Yes (Hospitalization, Other)
  Sender: FDA-Public Use
  Company Number: US-ROCHE-2093449

PATIENT
  Age: 1 Year
  Sex: Female
  Weight: 14.07 kg

DRUGS (5)
  1. NUTROPIN AQ [Suspect]
     Active Substance: SOMATROPIN
     Route: 058
  2. NUTROPIN AQ [Suspect]
     Active Substance: SOMATROPIN
     Indication: PRODUCT USED FOR UNKNOWN INDICATION
     Dosage: NUSPIN PEN.
     Route: 058
     Dates: end: 20151209
  3. NUTROPIN AQ [Suspect]
     Active Substance: SOMATROPIN
     Dosage: DOSE WAS INCREASED.
     Route: 058
  4. LEVETIRACETAM. [Concomitant]
     Active Substance: LEVETIRACETAM
     Dosage: 9 ML BY MOUTH TWO TIMES DAILY
     Route: 048
     Dates: start: 20151227
  5. NUTROPIN AQ [Suspect]
     Active Substance: SOMATROPIN
     Indication: PRADER-WILLI SYNDROME
     Dosage: NUSPIN PEN.
     Route: 058

REACTIONS (6)
  - Language disorder [Unknown]
  - Insulin-like growth factor decreased [Recovered/Resolved]
  - Off label use [Unknown]
  - Speech disorder [Unknown]
  - Insulin-like growth factor increased [Recovered/Resolved]
  - Intentional product use issue [Unknown]

NARRATIVE: CASE EVENT DATE: 20160119
